FAERS Safety Report 9146727 (Version 2)
Quarter: 2014Q1

REPORT INFORMATION
  Report Type: Spontaneous
  Country: US (occurrence: US)
  Receive Date: 20130307
  Receipt Date: 20140206
  Transmission Date: 20141002
  Serious: No
  Sender: FDA-Public Use
  Company Number: US-PFIZER INC-2013077187

PATIENT
  Age: 68 Year
  Sex: Male
  Weight: 86.17 kg

DRUGS (3)
  1. FLUCONAZOLE [Suspect]
     Indication: PULMONARY MYCOSIS
     Dosage: 200 MG, 2X/DAY
     Route: 048
  2. FLUCONAZOLE [Suspect]
     Dosage: 400 MG, 2X/DAY
     Route: 048
  3. SYNTHROID [Concomitant]
     Indication: AUTOIMMUNE THYROIDITIS
     Dosage: 0.125 MG, DAILY

REACTIONS (2)
  - Drug ineffective [Unknown]
  - Adverse drug reaction [Unknown]
